FAERS Safety Report 5756464-4 (Version None)
Quarter: 2008Q2

REPORT INFORMATION
  Report Type: 
  Country: None (occurrence: None)
  Receive Date: 20080528
  Receipt Date: 20080522
  Transmission Date: 20081010
  Serious: Yes (Hospitalization)
  Sender: FDA-Public Use
  Company Number: 2008PF0112

PATIENT
  Age: 58 Year
  Sex: Female
  Weight: 133.3 kg

DRUGS (16)
  1. PRAVAFEN [Suspect]
     Indication: HYPERLIPIDAEMIA
     Dosage: 40/160 MG, QD, PO
     Route: 048
     Dates: start: 20070914
  2. MIRALAX [Concomitant]
  3. LASIX [Concomitant]
  4. FLONASE [Concomitant]
  5. LISINOPRIL [Concomitant]
  6. PRILOSEC [Concomitant]
  7. OSTEO-BI-FLEX [Concomitant]
  8. ASPIRIN [Concomitant]
  9. MULTI-VITAMIN [Concomitant]
  10. TPN [Concomitant]
  11. ZYRTEC [Concomitant]
  12. ALLERGIES [Concomitant]
  13. TRAZODONE HCL [Concomitant]
  14. INSOMNIA [Concomitant]
  15. CELEXA [Concomitant]
  16. CALCIUM/VITAMIN D [Concomitant]

REACTIONS (1)
  - SPINAL FUSION SURGERY [None]
